FAERS Safety Report 21168832 (Version 2)
Quarter: 2022Q3

REPORT INFORMATION
  Report Type: Spontaneous
  Country: US (occurrence: US)
  Receive Date: 20220803
  Receipt Date: 20220907
  Transmission Date: 20221026
  Serious: No
  Sender: FDA-Public Use
  Company Number: US-009507513-2207USA006531

PATIENT

DRUGS (1)
  1. KEYTRUDA [Suspect]
     Active Substance: PEMBROLIZUMAB
     Indication: Malignant melanoma
     Dosage: 200 MILLIGRAM, Q 28 DAYS; FIRST CYCLE
     Dates: start: 20220714, end: 20220714

REACTIONS (3)
  - Product use issue [Unknown]
  - Liquid product physical issue [Unknown]
  - No adverse event [Unknown]
